FAERS Safety Report 7486394-1 (Version None)
Quarter: 2011Q2

REPORT INFORMATION
  Report Type: 
  Country: None (occurrence: None)
  Receive Date: 20110517
  Receipt Date: 20110505
  Transmission Date: 20111010
  Serious: Yes (Hospitalization)
  Sender: FDA-Public Use
  Company Number: ZA-UCBSA-032322

PATIENT
  Sex: Female
  Weight: 44 kg

DRUGS (6)
  1. CERTOLIZUMAB PEGOL [Suspect]
     Route: 058
     Dates: start: 20050112
  2. AKRINOR [Concomitant]
     Route: 048
     Dates: start: 20090605
  3. CERTOLIZUMAB PEGOL [Suspect]
     Dosage: CDP870-032
     Route: 058
     Dates: start: 20040830, end: 20041215
  4. CERTOLIZUMAB PEGOL [Suspect]
     Route: 058
  5. PENTASA [Concomitant]
     Route: 048
     Dates: start: 20040601
  6. CERTOLIZUMAB PEGOL [Suspect]
     Indication: CROHN'S DISEASE
     Dosage: CDP870-032
     Route: 058
     Dates: start: 20040705, end: 20040802

REACTIONS (1)
  - METABOLIC ACIDOSIS [None]
